FAERS Safety Report 10095307 (Version 2)
Quarter: 2014Q2

REPORT INFORMATION
  Report Type: Spontaneous
  Country: US (occurrence: US)
  Receive Date: 20140422
  Receipt Date: 20140422
  Transmission Date: 20141212
  Serious: Yes (Other)
  Sender: FDA-Public Use
  Company Number: US-GILEAD-2013-0073080

PATIENT
  Age: 64 Year
  Sex: Female

DRUGS (3)
  1. LETAIRIS [Suspect]
     Indication: PULMONARY HYPERTENSION
     Dosage: 5 MG, QD
     Dates: start: 20130221
  2. LETAIRIS [Suspect]
     Indication: ATRIAL SEPTAL DEFECT
  3. WARFARIN [Concomitant]

REACTIONS (3)
  - Hypersensitivity [Recovering/Resolving]
  - Throat tightness [Recovered/Resolved]
  - Oedema peripheral [Recovering/Resolving]
